FAERS Safety Report 15204304 (Version 4)
Quarter: 2018Q3

REPORT INFORMATION
  Report Type: Report from Study
  Country: CO (occurrence: CO)
  Receive Date: 20180726
  Receipt Date: 20180918
  Transmission Date: 20181010
  Serious: Yes (Hospitalization)
  Sender: FDA-Public Use
  Company Number: PHHY2018CO031079

PATIENT
  Age: 60 Year
  Sex: Female
  Weight: 63 kg

DRUGS (3)
  1. PREDNISOLONE. [Concomitant]
     Active Substance: PREDNISOLONE
     Indication: PRODUCT USED FOR UNKNOWN INDICATION
     Dosage: 5 MG, UNK
     Route: 065
  2. REVOLADE [Suspect]
     Active Substance: ELTROMBOPAG
     Dosage: 75 MG, QD
     Route: 048
     Dates: end: 20180618
  3. REVOLADE [Suspect]
     Active Substance: ELTROMBOPAG
     Indication: THROMBOCYTOPENIC PURPURA
     Dosage: 50 MG, QD
     Route: 048
     Dates: start: 20180510

REACTIONS (12)
  - Immune thrombocytopenic purpura [Unknown]
  - Headache [Unknown]
  - Mouth haemorrhage [Unknown]
  - Epistaxis [Unknown]
  - Asthenia [Unknown]
  - Platelet count decreased [Unknown]
  - Poor quality sleep [Unknown]
  - Drug ineffective [Unknown]
  - Tremor [Unknown]
  - Disease recurrence [Unknown]
  - Dizziness [Unknown]
  - Haematochezia [Unknown]

NARRATIVE: CASE EVENT DATE: 20180618
